FAERS Safety Report 5676670-7 (Version None)
Quarter: 2008Q1

REPORT INFORMATION
  Report Type: 
  Country: None (occurrence: None)
  Receive Date: 20080320
  Receipt Date: 20080320
  Transmission Date: 20080703
  Serious: Yes (Life-Threatening, Disabling, Other)
  Sender: FDA-Public Use
  Company Number: None

PATIENT
  Age: 20 Year
  Sex: Male
  Weight: 77.1115 kg

DRUGS (1)
  1. NEW INHALER PROAIR [Suspect]

REACTIONS (3)
  - DRUG INEFFECTIVE [None]
  - FEAR [None]
  - MORBID THOUGHTS [None]
